FAERS Safety Report 15696649 (Version 3)
Quarter: 2019Q1

REPORT INFORMATION
  Report Type: Report from Study
  Country: CA (occurrence: CA)
  Receive Date: 20181206
  Receipt Date: 20190227
  Transmission Date: 20190417
  Serious: Yes (Other)
  Sender: FDA-Public Use
  Company Number: CA-JNJFOC-20181203206

PATIENT
  Age: 55 Year
  Sex: Female
  Weight: 103.2 kg

DRUGS (5)
  1. HYDROCORTISONE. [Suspect]
     Active Substance: HYDROCORTISONE
     Indication: PREMEDICATION
     Route: 065
  2. REMICADE [Suspect]
     Active Substance: INFLIXIMAB
     Indication: CROHN^S DISEASE
     Route: 042
  3. HYDROCORTISONE. [Suspect]
     Active Substance: HYDROCORTISONE
     Indication: PREMEDICATION
     Route: 065
  4. WARFARIN [Concomitant]
     Active Substance: WARFARIN
     Route: 065
  5. ASA [Concomitant]
     Active Substance: ASPIRIN
     Route: 065

REACTIONS (5)
  - Product use issue [Unknown]
  - Thrombosis [Unknown]
  - Vitreous detachment [Recovered/Resolved]
  - Off label use [Unknown]
  - Intestinal resection [Unknown]

NARRATIVE: CASE EVENT DATE: 201711
